FAERS Safety Report 4614686-X (Version None)
Quarter: 2005Q2

REPORT INFORMATION
  Report Type: 
  Country: None (occurrence: None)
  Receive Date: 20050311
  Receipt Date: 20050120
  Transmission Date: 20051028
  Serious: No
  Sender: FDA-Public Use
  Company Number: 2005-BP-01031BP

PATIENT
  Age: 56 Year
  Sex: Female

DRUGS (3)
  1. SPIRIVA [Suspect]
     Indication: LUNG DISORDER
     Dosage: 18 MCG (18 MCG), IH
     Route: 055
     Dates: start: 20041001, end: 20041001
  2. LOTENSIN HCT (CIBADREX ^CIBA-GEIGY^) [Concomitant]
  3. ACETYLSALICYLIC ACID SRT [Concomitant]

REACTIONS (4)
  - CHEST DISCOMFORT [None]
  - LUNG DISORDER [None]
  - NASAL DISCOMFORT [None]
  - PHARYNGOLARYNGEAL PAIN [None]
